FAERS Safety Report 20389812 (Version 1)
Quarter: 2022Q1

REPORT INFORMATION
  Report Type: Spontaneous
  Country: US (occurrence: None)
  Receive Date: 20220128
  Receipt Date: 20220128
  Transmission Date: 20220423
  Serious: No
  Sender: FDA-Public Use
  Company Number: US-Ultragenyx Pharmaceutical Inc.-US-UGNX-21-00479

PATIENT
  Age: 7 Year
  Sex: Male
  Weight: 44.1 kg

DRUGS (5)
  1. DOJOLVI [Suspect]
     Active Substance: TRIHEPTANOIN
     Indication: Long-chain acyl-coenzyme A dehydrogenase deficiency
     Dosage: 55 ML/DAY IN 5 DIVIDED DOSES
     Dates: start: 201508
  2. LEVOCARNITINE [Concomitant]
     Active Substance: LEVOCARNITINE
     Indication: Product used for unknown indication
     Dosage: 100MG/ML, 1ML A DAY
  3. CULTURELLE [Concomitant]
     Active Substance: LACTOBACILLUS RHAMNOSUS
     Indication: Product used for unknown indication
  4. CALCIUM CARBONATE [Concomitant]
     Active Substance: CALCIUM CARBONATE
     Indication: Product used for unknown indication
  5. NORDIC NATURALS COMPLETE OMEGA [Concomitant]
     Indication: Product used for unknown indication

REACTIONS (1)
  - Free fatty acids increased [Recovered/Resolved]

NARRATIVE: CASE EVENT DATE: 20200217
